FAERS Safety Report 11141818 (Version 1)
Quarter: 2015Q2

REPORT INFORMATION
  Report Type: Spontaneous
  Country: US (occurrence: None)
  Receive Date: 20150526
  Receipt Date: 20150526
  Transmission Date: 20150821
  Serious: Yes (Other)
  Sender: FDA-Public Use
  Company Number: None

PATIENT
  Age: 62 Year
  Sex: Male
  Weight: 84.37 kg

DRUGS (2)
  1. TRAMADOL [Suspect]
     Active Substance: TRAMADOL
     Indication: NECK SURGERY
     Dosage: 1 TAB BY MOUTH EVERY 6 HOURS THREE TIMES DAILY TAKEN BY MOUTH
     Route: 048
  2. TRAMADOL [Suspect]
     Active Substance: TRAMADOL
     Indication: NERVE COMPRESSION
     Dosage: 1 TAB BY MOUTH EVERY 6 HOURS THREE TIMES DAILY TAKEN BY MOUTH
     Route: 048

REACTIONS (2)
  - Pain in extremity [None]
  - Ejaculation disorder [None]

NARRATIVE: CASE EVENT DATE: 20150504
